FAERS Safety Report 7619354-8 (Version None)
Quarter: 2011Q3

REPORT INFORMATION
  Report Type: 
  Country: None (occurrence: None)
  Receive Date: 20110719
  Receipt Date: 20110705
  Transmission Date: 20111222
  Serious: Yes (Hospitalization)
  Sender: FDA-Public Use
  Company Number: KR-AMGEN-KORCT2011036009

PATIENT
  Age: 56 Year
  Sex: Female
  Weight: 56 kg

DRUGS (9)
  1. PYRIDOXINE HCL [Concomitant]
     Indication: PROPHYLAXIS
     Dosage: 25 MG, UNK
     Route: 048
     Dates: start: 20101116
  2. ETANERCEPT [Suspect]
     Indication: RHEUMATOID ARTHRITIS
     Dosage: 25 MG, 2 TIMES/WK
     Route: 058
     Dates: start: 20101207, end: 20110628
  3. TRIAMCINOLONE [Concomitant]
     Indication: RHEUMATOID ARTHRITIS
     Dosage: 2 MG, UNK
     Route: 048
     Dates: start: 20110628
  4. MUCOSTA [Concomitant]
     Indication: PROPHYLAXIS AGAINST GASTROINTESTINAL ULCER
     Dosage: 200 MG, UNK
     Route: 048
     Dates: start: 20100101
  5. METHOTREXATE [Concomitant]
     Indication: RHEUMATOID ARTHRITIS
     Dosage: 15 MG, UNK
     Route: 048
     Dates: start: 20100101
  6. FOLIC ACID [Concomitant]
     Indication: PROPHYLAXIS
     Dosage: 1 MG, UNK
     Route: 048
     Dates: start: 20100101
  7. LIPITOR [Concomitant]
     Indication: DYSLIPIDAEMIA
     Dosage: 10 MG, UNK
     Route: 048
     Dates: start: 20110104
  8. YUHAN-ZID [Concomitant]
     Indication: PROPHYLAXIS
     Dosage: 300 MG, UNK
     Route: 048
     Dates: start: 20101116
  9. CELEBREX [Concomitant]
     Indication: RHEUMATOID ARTHRITIS
     Dosage: 400 MG, UNK
     Route: 048
     Dates: start: 20100101

REACTIONS (1)
  - MUSCULAR WEAKNESS [None]
